FAERS Safety Report 23853441 (Version 1)
Quarter: 2024Q2

REPORT INFORMATION
  Report Type: Report from Study
  Country: IT (occurrence: IT)
  Receive Date: 20240514
  Receipt Date: 20240514
  Transmission Date: 20240715
  Serious: Yes (Other)
  Sender: FDA-Public Use
  Company Number: IT-SUN PHARMACEUTICAL INDUSTRIES LTD-2024R1-446006

PATIENT
  Age: 6 Year
  Sex: Female
  Weight: 30 kg

DRUGS (1)
  1. METHOTREXATE [Suspect]
     Active Substance: METHOTREXATE
     Indication: Juvenile idiopathic arthritis
     Dosage: 15 MILLIGRAM/MQ ONCE WEEK
     Route: 058

REACTIONS (2)
  - Therapy non-responder [Unknown]
  - Hepatic enzyme abnormal [Unknown]
